FAERS Safety Report 19325916 (Version 1)
Quarter: 2021Q2

REPORT INFORMATION
  Report Type: Spontaneous
  Country: ES (occurrence: ES)
  Receive Date: 20210528
  Receipt Date: 20210528
  Transmission Date: 20210717
  Serious: Yes (Life-Threatening)
  Sender: FDA-Public Use
  Company Number: ES-TEVA-2021-ES-1915443

PATIENT
  Age: 23 Year
  Sex: Female

DRUGS (4)
  1. METAMIZOL (111A) [Suspect]
     Active Substance: METAMIZOL SODIUM
     Indication: TONSILLITIS
     Dosage: 575 MG
     Route: 048
     Dates: start: 20210223, end: 20210225
  2. ISOTRETINOINA (37A) [Concomitant]
     Active Substance: ISOTRETINOIN
     Indication: ACNE
     Route: 048
     Dates: start: 202012, end: 20210225
  3. AMOXICILINA (108A) [Suspect]
     Active Substance: AMOXICILLIN
     Indication: TONSILLITIS
     Dosage: 500 MG
     Route: 048
     Dates: start: 20210220, end: 20210224
  4. PARACETAMOL (12A) [Suspect]
     Active Substance: ACETAMINOPHEN
     Indication: TONSILLITIS
     Dosage: 650 MG
     Route: 048
     Dates: start: 20210220, end: 20210225

REACTIONS (4)
  - Acute respiratory failure [Recovered/Resolved]
  - SJS-TEN overlap [Recovered/Resolved]
  - Hyperbilirubinaemia [Recovering/Resolving]
  - Hepatitis toxic [Recovering/Resolving]

NARRATIVE: CASE EVENT DATE: 20210223
